FAERS Safety Report 5036036-X (Version None)
Quarter: 2006Q2

REPORT INFORMATION
  Report Type: 
  Country: None (occurrence: None)
  Receive Date: 20060526
  Receipt Date: 20060125
  Transmission Date: 20061013
  Serious: Yes (Disabling, Other)
  Sender: FDA-Public Use
  Company Number: WAES 0512USA03968

PATIENT
  Age: 52 Year
  Sex: Female
  Weight: 55.3388 kg

DRUGS (1)
  1. VYTORIN [Suspect]
     Indication: BLOOD CHOLESTEROL INCREASED
     Dosage: 10-20 MG DAILY PO
     Route: 048
     Dates: start: 20051220, end: 20051222

REACTIONS (4)
  - PRURITUS [None]
  - PYREXIA [None]
  - RASH MACULO-PAPULAR [None]
  - URTICARIA [None]
